FAERS Safety Report 4772367-6 (Version None)
Quarter: 2005Q3

REPORT INFORMATION
  Report Type: 
  Country: None (occurrence: None)
  Receive Date: 20050919
  Receipt Date: 20041203
  Transmission Date: 20060218
  Serious: No
  Sender: FDA-Public Use
  Company Number: US-BRISTOL-MYERS SQUIBB COMPANY-12785275

PATIENT
  Age: 57 Year
  Sex: Female
  Weight: 91 kg

DRUGS (2)
  1. KENALOG-40 [Suspect]
     Indication: EXOSTOSIS
     Dates: start: 20041202, end: 20041202
  2. DIOVAN [Concomitant]

REACTIONS (1)
  - POSTMENOPAUSAL HAEMORRHAGE [None]
